FAERS Safety Report 6727205-9 (Version None)
Quarter: 2010Q2

REPORT INFORMATION
  Report Type: 
  Country: None (occurrence: None)
  Receive Date: 20100517
  Receipt Date: 20100505
  Transmission Date: 20101027
  Serious: No
  Sender: FDA-Public Use
  Company Number: US-JNJFOC-20100502442

PATIENT
  Age: 74 Year
  Sex: Male
  Weight: 95.26 kg

DRUGS (3)
  1. FENTANYL CITRATE [Suspect]
     Indication: PAIN
     Route: 062
  2. NEXIUM [Concomitant]
     Indication: GASTROOESOPHAGEAL REFLUX DISEASE
     Route: 048
  3. PHENERGAN [Concomitant]
     Indication: NAUSEA
     Route: 048

REACTIONS (1)
  - WRONG TECHNIQUE IN DRUG USAGE PROCESS [None]
